FAERS Safety Report 20433954 (Version 1)
Quarter: 2022Q1

REPORT INFORMATION
  Report Type: Report from Study
  Country: CA (occurrence: CA)
  Receive Date: 20220205
  Receipt Date: 20220205
  Transmission Date: 20220424
  Serious: Yes (Other)
  Sender: FDA-Public Use
  Company Number: CA-MYLANLABS-2022M1008256

PATIENT
  Age: 40 Year
  Sex: Male

DRUGS (1)
  1. ADALIMUMAB [Suspect]
     Active Substance: ADALIMUMAB
     Indication: Psoriatic arthropathy
     Dosage: UNK

REACTIONS (2)
  - Psoriatic arthropathy [Unknown]
  - Therapy interrupted [Unknown]
